FAERS Safety Report 5223470-8 (Version None)
Quarter: 2007Q1

REPORT INFORMATION
  Report Type: 
  Country: None (occurrence: None)
  Receive Date: 20070125
  Receipt Date: 20070122
  Transmission Date: 20070707
  Serious: Yes (Death)
  Sender: FDA-Public Use
  Company Number: 2007-00250

PATIENT
  Age: 61 Year
  Sex: Female

DRUGS (4)
  1. AFEDITAB (WATSON LABORATORIES) TABLET (EXTENDED RELEASE) [Suspect]
     Indication: INTENTIONAL OVERDOSE
  2. VENLAFAXINE HCL [Suspect]
     Indication: INTENTIONAL OVERDOSE
  3. SERTRALINE [Suspect]
     Indication: INTENTIONAL OVERDOSE
  4. ATORVASTATIN CALCIUM [Suspect]
     Indication: INTENTIONAL OVERDOSE

REACTIONS (3)
  - BEZOAR [None]
  - COMPLETED SUICIDE [None]
  - MULTIPLE DRUG OVERDOSE INTENTIONAL [None]
